FAERS Safety Report 4420872-4 (Version None)
Quarter: 2004Q3

REPORT INFORMATION
  Report Type: 
  Country: None (occurrence: None)
  Receive Date: 20040804
  Receipt Date: 20040726
  Transmission Date: 20050211
  Serious: Yes (Death, Other)
  Sender: FDA-Public Use
  Company Number: 2004EU001424

PATIENT
  Age: 35 Year
  Sex: Male

DRUGS (4)
  1. PROGRAF [Suspect]
     Indication: RENAL TRANSPLANT
     Dosage: 9.00 MG, BID.
     Dates: start: 20040101, end: 20040701
  2. CANNABIS (CANNABIS) [Suspect]
  3. CELLCEPT [Suspect]
     Dosage: D
  4. CORTICOSTEROIDS ( ) [Suspect]
     Dosage: D

REACTIONS (5)
  - DRUG ABUSER [None]
  - DRUG INTERACTION [None]
  - HYPERTHYROIDISM [None]
  - IMMUNOSUPPRESSANT DRUG LEVEL INCREASED [None]
  - OVERDOSE [None]
